FAERS Safety Report 16627829 (Version 2)
Quarter: 2019Q3

REPORT INFORMATION
  Report Type: Spontaneous
  Country: US (occurrence: US)
  Receive Date: 20190724
  Receipt Date: 20190730
  Transmission Date: 20191004
  Serious: No
  Sender: FDA-Public Use
  Company Number: US-JNJFOC-20190704262

PATIENT
  Age: 16 Year
  Sex: Male
  Weight: 54.48 kg

DRUGS (1)
  1. RISPERDAL [Suspect]
     Active Substance: RISPERIDONE
     Indication: PRODUCT USED FOR UNKNOWN INDICATION
     Route: 048
     Dates: start: 2007

REACTIONS (5)
  - Psychotic disorder [Unknown]
  - Sleep disorder [Recovered/Resolved]
  - Weight increased [Recovered/Resolved]
  - Eating disorder [Recovered/Resolved]
  - Liquid product physical issue [Unknown]
